FAERS Safety Report 24279948 (Version 1)
Quarter: 2024Q3

REPORT INFORMATION
  Report Type: Spontaneous
  Country: US (occurrence: US)
  Receive Date: 20240904
  Receipt Date: 20240904
  Transmission Date: 20241017
  Serious: Yes (Other)
  Sender: SPECGX
  Company Number: US-SPECGX-T202401786

PATIENT
  Age: 35 Year
  Sex: Female

DRUGS (1)
  1. OXYCODONE [Suspect]
     Active Substance: OXYCODONE
     Indication: Product used for unknown indication
     Dosage: UNK (CRUSHED OXYCODONE)
     Route: 042

REACTIONS (5)
  - Bronchiolitis [Unknown]
  - Respiratory distress [Unknown]
  - Lung disorder [Unknown]
  - Product use issue [Unknown]
  - Wrong technique in product usage process [Unknown]
